FAERS Safety Report 6993553-0 (Version None)
Quarter: 2010Q3

REPORT INFORMATION
  Report Type: 
  Country: None (occurrence: None)
  Receive Date: 20100917
  Receipt Date: 20100914
  Transmission Date: 20110219
  Serious: Yes (Hospitalization)
  Sender: FDA-Public Use
  Company Number: FR-WYE-G06666410

PATIENT
  Sex: Female
  Weight: 70 kg

DRUGS (6)
  1. RHINADVIL [Suspect]
     Indication: RESPIRATORY DISORDER
     Route: 048
     Dates: start: 20090703, end: 20090707
  2. TRIFLUCAN [Concomitant]
     Indication: RESPIRATORY DISORDER
     Dosage: UNKNOWN
     Dates: start: 20090703
  3. CEBUTID [Suspect]
     Route: 048
     Dates: start: 20090610, end: 20090616
  4. DETURGYLONE [Concomitant]
     Indication: RESPIRATORY DISORDER
     Dosage: UNKNOWN
     Route: 045
     Dates: start: 20090703
  5. ALLOPURINOL [Suspect]
     Route: 048
     Dates: start: 20090511, end: 20090610
  6. KETOPROFEN [Suspect]
     Dosage: UNKNOWN
     Route: 061
     Dates: start: 20090511, end: 20090610

REACTIONS (2)
  - DRUG RASH WITH EOSINOPHILIA AND SYSTEMIC SYMPTOMS [None]
  - FAECES DISCOLOURED [None]
